FAERS Safety Report 5132475-7 (Version None)
Quarter: 2006Q4

REPORT INFORMATION
  Report Type: 
  Country: None (occurrence: None)
  Receive Date: 20061017
  Receipt Date: 20061009
  Transmission Date: 20070319
  Serious: Yes (Other)
  Sender: FDA-Public Use
  Company Number: SE-GDP-0613650

PATIENT
  Age: 30 Year
  Sex: Female

DRUGS (2)
  1. DIFFERIN [Suspect]
     Indication: ACNE
     Dosage: 1 APP QD TP
     Route: 061
     Dates: start: 20020101, end: 20060723
  2. MULTI-VITAMINS [Concomitant]

REACTIONS (2)
  - ABORTION SPONTANEOUS [None]
  - DRUG EXPOSURE DURING PREGNANCY [None]
